FAERS Safety Report 6617882-5 (Version None)
Quarter: 2010Q1

REPORT INFORMATION
  Report Type: 
  Country: None (occurrence: None)
  Receive Date: 20100308
  Receipt Date: 20100224
  Transmission Date: 20100710
  Serious: No
  Sender: FDA-Public Use
  Company Number: DE-ELI_LILLY_AND_COMPANY-DE201002001420

PATIENT
  Sex: Female
  Weight: 70 kg

DRUGS (2)
  1. CYMBALTA [Suspect]
     Dosage: 30 MG, DAILY (1/D)
     Route: 048
     Dates: end: 20091211
  2. OXYCODON [Concomitant]
     Dosage: 20 MG, UNKNOWN
     Route: 048

REACTIONS (3)
  - FLATULENCE [None]
  - LIVER DISORDER [None]
  - SENSATION OF PRESSURE [None]
